FAERS Safety Report 7721540-3 (Version None)
Quarter: 2011Q3

REPORT INFORMATION
  Report Type: 
  Country: None (occurrence: None)
  Receive Date: 20110831
  Receipt Date: 20110823
  Transmission Date: 20111222
  Serious: Yes (Hospitalization)
  Sender: FDA-Public Use
  Company Number: JP-JNJFOC-20101103131

PATIENT
  Sex: Female

DRUGS (14)
  1. TOPIRAMATE [Suspect]
     Indication: EPILEPSY
     Route: 048
     Dates: start: 20100423, end: 20100501
  2. ALFAROL [Concomitant]
     Route: 048
     Dates: start: 20100812
  3. PHENYTOIN SODIUM CAP [Concomitant]
     Route: 048
  4. GASMOTIN [Concomitant]
     Route: 048
     Dates: start: 20100425
  5. TORSEMIDE [Concomitant]
     Route: 048
     Dates: start: 20100425
  6. BONOTEO [Concomitant]
     Route: 048
     Dates: start: 20100812
  7. CEFTRIAXONE SODIUM [Concomitant]
     Route: 065
     Dates: start: 20100427, end: 20100501
  8. TOPIRAMATE [Suspect]
     Dosage: 100 MG TWICE A DAY
     Route: 048
     Dates: start: 20100502
  9. DIAZEPAM [Concomitant]
     Route: 065
     Dates: start: 20100422, end: 20100422
  10. ALOSENN [Concomitant]
     Route: 048
     Dates: start: 20100425
  11. MAGMITT [Concomitant]
     Route: 048
     Dates: start: 20100425
  12. WARFARIN SODIUM [Concomitant]
     Route: 048
     Dates: start: 20100425
  13. RABEPRAZOLE SODIUM [Concomitant]
     Route: 048
     Dates: start: 20100425
  14. CELECOXIB [Concomitant]
     Route: 048
     Dates: start: 20100812

REACTIONS (1)
  - HEPATIC FUNCTION ABNORMAL [None]
